FAERS Safety Report 8224369-5 (Version None)
Quarter: 2012Q1

REPORT INFORMATION
  Report Type: 
  Country: None (occurrence: None)
  Receive Date: 20120321
  Receipt Date: 20120319
  Transmission Date: 20120608
  Serious: Yes (Death)
  Sender: FDA-Public Use
  Company Number: CN-PFIZER INC-2012062528

PATIENT
  Age: 49 Year
  Sex: Male

DRUGS (2)
  1. GLEEVEC [Concomitant]
  2. SUTENT [Suspect]
     Indication: GASTROINTESTINAL STROMAL TUMOUR
     Dosage: UNK

REACTIONS (2)
  - GASTROINTESTINAL STROMAL TUMOUR [None]
  - DISEASE PROGRESSION [None]
